FAERS Safety Report 9722839 (Version 1)
Quarter: 2013Q4

REPORT INFORMATION
  Report Type: Spontaneous
  Country: US (occurrence: US)
  Receive Date: 20131202
  Receipt Date: 20131202
  Transmission Date: 20140711
  Serious: Yes (Hospitalization)
  Sender: FDA-Public Use
  Company Number: US-JNJFOC-20131114873

PATIENT
  Age: 81 Year
  Sex: Male
  Weight: 117.94 kg

DRUGS (1)
  1. XARELTO [Suspect]
     Indication: ANTICOAGULANT THERAPY
     Route: 048
     Dates: start: 20130417, end: 20130516

REACTIONS (2)
  - Cerebral haemorrhage [Unknown]
  - Dizziness [Unknown]
